FAERS Safety Report 7775527-5 (Version None)
Quarter: 2011Q3

REPORT INFORMATION
  Report Type: 
  Country: None (occurrence: None)
  Receive Date: 20110923
  Receipt Date: 20110914
  Transmission Date: 20111222
  Serious: Yes (Other)
  Sender: FDA-Public Use
  Company Number: CA-ASTRAZENECA-2011SE36728

PATIENT
  Age: 58 Year
  Sex: Male

DRUGS (5)
  1. CRESTOR [Suspect]
     Route: 048
     Dates: start: 20110415, end: 20110501
  2. HYDROCHLOROTHIAZIDE [Concomitant]
     Route: 048
  3. ASPIRIN [Concomitant]
     Route: 048
  4. CRESTOR [Suspect]
     Dosage: TAKING HALF TABLET
     Route: 048
     Dates: end: 20110601
  5. METOPROLOL SUCCINATE [Concomitant]
     Route: 048

REACTIONS (6)
  - PALPITATIONS [None]
  - ANXIETY [None]
  - NIGHTMARE [None]
  - FATIGUE [None]
  - WRONG TECHNIQUE IN DRUG USAGE PROCESS [None]
  - INSOMNIA [None]
